FAERS Safety Report 18907938 (Version 1)
Quarter: 2021Q1

REPORT INFORMATION
  Report Type: Spontaneous
  Country: US (occurrence: US)
  Receive Date: 20210218
  Receipt Date: 20210218
  Transmission Date: 20210420
  Serious: Yes (Hospitalization, Other)
  Sender: FDA-Public Use
  Company Number: US-AUROBINDO-AUR-APL-2019-083338

PATIENT
  Age: 79 Year
  Sex: Female

DRUGS (3)
  1. DIGOXIN. [Suspect]
     Active Substance: DIGOXIN
     Indication: PRODUCT USED FOR UNKNOWN INDICATION
     Dosage: 0.125MG DAILY
     Route: 065
  2. DILTIAZEM. [Suspect]
     Active Substance: DILTIAZEM
     Indication: PRODUCT USED FOR UNKNOWN INDICATION
     Dosage: 360MG DAILY; EXTENDED RELEASE
     Route: 065
  3. CLONIDINE. [Suspect]
     Active Substance: CLONIDINE
     Indication: PRODUCT USED FOR UNKNOWN INDICATION
     Dosage: 0.3 MILLIGRAM, 3 TIMES A DAY
     Route: 065

REACTIONS (7)
  - Incorrect product administration duration [Recovered/Resolved]
  - Left atrial enlargement [Unknown]
  - Arrhythmia [Unknown]
  - Sinus bradycardia [Unknown]
  - Extra dose administered [Recovered/Resolved]
  - Toxicity to various agents [Unknown]
  - Atrioventricular block second degree [Unknown]
